FAERS Safety Report 7369403-X (Version None)
Quarter: 2011Q1

REPORT INFORMATION
  Report Type: 
  Country: None (occurrence: None)
  Receive Date: 20110323
  Receipt Date: 20110310
  Transmission Date: 20110831
  Serious: Yes (Other)
  Sender: FDA-Public Use
  Company Number: BR-SANOFI-AVENTIS-2011SA014989

PATIENT
  Age: 53 Year
  Sex: Male
  Weight: 69 kg

DRUGS (3)
  1. ACARBOSE [Concomitant]
     Dosage: 1 TAB AFTER LUNCH AND 1 TAB AFTER DINNER
     Route: 048
  2. LANTUS [Suspect]
     Route: 058
  3. AUTOPEN 24 [Suspect]
     Route: 058
     Dates: start: 20101201

REACTIONS (4)
  - CATARACT [None]
  - EYE DISORDER [None]
  - VISUAL ACUITY REDUCED [None]
  - EYE OEDEMA [None]
